FAERS Safety Report 8279290-3 (Version None)
Quarter: 2012Q2

REPORT INFORMATION
  Report Type: 
  Country: None (occurrence: None)
  Receive Date: 20120412
  Receipt Date: 20120327
  Transmission Date: 20120825
  Serious: Yes (Other)
  Sender: FDA-Public Use
  Company Number: CHPA2012US006269

PATIENT
  Sex: Female

DRUGS (3)
  1. PERCOCET [Concomitant]
     Indication: PAIN
     Dosage: UNK
  2. EXCEDRIN EXTRA STRENGTH TABLETS [Suspect]
     Indication: MIGRAINE
     Dosage: 4 DF, QD
     Route: 048
     Dates: start: 20010101
  3. BOTOX [Concomitant]
     Indication: MIGRAINE
     Dosage: UNK
     Dates: start: 20120305

REACTIONS (5)
  - MIGRAINE [None]
  - ABDOMINAL HERNIA [None]
  - INCORRECT DOSE ADMINISTERED [None]
  - THERAPEUTIC RESPONSE DECREASED [None]
  - GASTRIC ULCER [None]
